FAERS Safety Report 10213792 (Version 1)
Quarter: 2014Q2

REPORT INFORMATION
  Report Type: Spontaneous
  Country: US (occurrence: US)
  Receive Date: 20140603
  Receipt Date: 20140603
  Transmission Date: 20141212
  Serious: No
  Sender: FDA-Public Use
  Company Number: US-ASTRAZENECA-2014SE35659

PATIENT
  Sex: Female

DRUGS (1)
  1. SYMBICORT [Suspect]
     Dosage: 80/4.5 TWO PUFFS BID
     Route: 055
     Dates: start: 201401

REACTIONS (5)
  - Abdominal discomfort [Unknown]
  - Candida infection [Unknown]
  - Device misuse [Unknown]
  - Drug dose omission [Unknown]
  - Off label use [Unknown]
